FAERS Safety Report 24558684 (Version 2)
Quarter: 2024Q4

REPORT INFORMATION
  Report Type: Spontaneous
  Country: DE (occurrence: DE)
  Receive Date: 20241029
  Receipt Date: 20241210
  Transmission Date: 20250115
  Serious: No
  Sender: ALEXION PHARMACEUTICALS
  Company Number: DE-AURINIA PHARMACEUTICALS INC.-AUR-006661

PATIENT
  Age: 23 Year

DRUGS (27)
  1. SAPHNELO [Suspect]
     Active Substance: ANIFROLUMAB-FNIA
     Route: 065
  2. HYDROXYCHLOROQUINE [Concomitant]
     Active Substance: HYDROXYCHLOROQUINE
     Indication: Lupus nephritis
     Route: 065
  3. HYDROXYCHLOROQUINE [Concomitant]
     Active Substance: HYDROXYCHLOROQUINE
  4. HYDROXYCHLOROQUINE [Concomitant]
     Active Substance: HYDROXYCHLOROQUINE
  5. HUMAN IMMUNOGLOBULIN G [Concomitant]
     Active Substance: HUMAN IMMUNOGLOBULIN G
     Indication: Lupus nephritis
  6. AZATHIOPRINE [Concomitant]
     Active Substance: AZATHIOPRINE
     Indication: Lupus nephritis
     Route: 065
  7. AZATHIOPRINE [Concomitant]
     Active Substance: AZATHIOPRINE
  8. AZATHIOPRINE [Concomitant]
     Active Substance: AZATHIOPRINE
  9. METHOTREXATE [Concomitant]
     Active Substance: METHOTREXATE
     Indication: Lupus nephritis
     Route: 065
  10. METHOTREXATE [Concomitant]
     Active Substance: METHOTREXATE
  11. METHOTREXATE [Concomitant]
     Active Substance: METHOTREXATE
  12. LUPKYNIS [Concomitant]
     Active Substance: VOCLOSPORIN
     Indication: Lupus nephritis
     Dosage: UNK
  13. LUPKYNIS [Concomitant]
     Active Substance: VOCLOSPORIN
     Dosage: UNK
  14. LUPKYNIS [Concomitant]
     Active Substance: VOCLOSPORIN
     Dosage: UNK
  15. PREDNISOLONE [Concomitant]
     Active Substance: PREDNISOLONE
     Indication: Lupus nephritis
     Route: 065
  16. PREDNISOLONE [Concomitant]
     Active Substance: PREDNISOLONE
  17. PREDNISOLONE [Concomitant]
     Active Substance: PREDNISOLONE
  18. MYCOPHENOLATE MOFETIL [Concomitant]
     Active Substance: MYCOPHENOLATE MOFETIL
     Indication: Lupus nephritis
     Dosage: UNK
     Route: 065
  19. MYCOPHENOLATE MOFETIL [Concomitant]
     Active Substance: MYCOPHENOLATE MOFETIL
     Dosage: UNK
  20. MYCOPHENOLATE MOFETIL [Concomitant]
     Active Substance: MYCOPHENOLATE MOFETIL
     Dosage: UNK
  21. DAPSONE [Concomitant]
     Active Substance: DAPSONE
     Indication: Lupus nephritis
     Route: 065
  22. DAPSONE [Concomitant]
     Active Substance: DAPSONE
  23. DAPSONE [Concomitant]
     Active Substance: DAPSONE
  24. BELIMUMAB [Concomitant]
     Active Substance: BELIMUMAB
     Indication: Lupus nephritis
     Route: 065
  25. BELIMUMAB [Concomitant]
     Active Substance: BELIMUMAB
  26. BELIMUMAB [Concomitant]
     Active Substance: BELIMUMAB
  27. CORTISONE [Concomitant]
     Active Substance: CORTISONE
     Indication: Product used for unknown indication
     Dosage: UNK

REACTIONS (1)
  - Drug ineffective [Unknown]
